FAERS Safety Report 25384219 (Version 1)
Quarter: 2025Q2

REPORT INFORMATION
  Report Type: Spontaneous
  Country: US (occurrence: US)
  Receive Date: 20250602
  Receipt Date: 20250602
  Transmission Date: 20250716
  Serious: Yes (Other)
  Sender: Vantive US Healthcare
  Company Number: US-VANTIVE-2025VAN002456

PATIENT
  Sex: Male
  Weight: 96 kg

DRUGS (6)
  1. EXTRANEAL [Suspect]
     Active Substance: CALCIUM CHLORIDE\ICODEXTRIN\MAGNESIUM CHLORIDE\SODIUM CHLORIDE\SODIUM LACTATE
     Route: 033
  2. DEXTROSE [Suspect]
     Active Substance: DEXTROSE MONOHYDRATE
     Route: 065
  3. DEXTROSE [Suspect]
     Active Substance: DEXTROSE MONOHYDRATE
     Route: 065
  4. DEXTROSE [Suspect]
     Active Substance: DEXTROSE MONOHYDRATE
     Route: 065
  5. CALCIUM [Suspect]
     Active Substance: CALCIUM
     Route: 065
  6. MAGNESIUM [Suspect]
     Active Substance: MAGNESIUM
     Route: 065

REACTIONS (4)
  - Peritonitis bacterial [Recovering/Resolving]
  - Peritoneal cloudy effluent [Recovering/Resolving]
  - Abdominal pain [Recovering/Resolving]
  - Constipation [Recovered/Resolved]
